FAERS Safety Report 5630679-8 (Version None)
Quarter: 2008Q1

REPORT INFORMATION
  Report Type: 
  Country: None (occurrence: None)
  Receive Date: 20080219
  Receipt Date: 20080212
  Transmission Date: 20080703
  Serious: Yes (Hospitalization)
  Sender: FDA-Public Use
  Company Number: JP-MERCK-0802USA03523

PATIENT
  Age: 92 Year
  Sex: Male

DRUGS (3)
  1. PEPCID RPD [Suspect]
     Route: 048
     Dates: start: 20070712, end: 20070921
  2. TICLOPIDINE HCL [Suspect]
     Route: 048
     Dates: start: 20070712, end: 20070921
  3. BLOPRESS [Concomitant]
     Route: 048
     Dates: end: 20070921

REACTIONS (1)
  - APLASTIC ANAEMIA [None]
